FAERS Safety Report 17885906 (Version 1)
Quarter: 2020Q2

REPORT INFORMATION
  Report Type: Report from Study
  Country: IT (occurrence: IT)
  Receive Date: 20200611
  Receipt Date: 20200611
  Transmission Date: 20200714
  Serious: Yes (Hospitalization)
  Sender: FDA-Public Use
  Company Number: IT-JNJFOC-20200604116

PATIENT
  Age: 90 Year
  Sex: Female

DRUGS (9)
  1. FERRO-GRAD [Concomitant]
     Active Substance: FERROUS SULFATE
  2. ATORVASTATIN [Concomitant]
     Active Substance: ATORVASTATIN
  3. FOLINA [FOLIC ACID] [Concomitant]
     Active Substance: FOLIC ACID
  4. PEPTAZOL [LANSOPRAZOLE] [Concomitant]
     Active Substance: LANSOPRAZOLE
  5. RIVAROXABAN [Suspect]
     Active Substance: RIVAROXABAN
     Indication: ATRIAL FIBRILLATION
     Route: 048
     Dates: start: 20200101, end: 20200326
  6. MICARDIS [Concomitant]
     Active Substance: TELMISARTAN
  7. LASIX [Concomitant]
     Active Substance: FUROSEMIDE
  8. CONGESCOR [Concomitant]
     Active Substance: BISOPROLOL
  9. ZYLORIC [Concomitant]
     Active Substance: ALLOPURINOL

REACTIONS (1)
  - Haemoglobin decreased [Unknown]

NARRATIVE: CASE EVENT DATE: 20200326
